FAERS Safety Report 19451040 (Version 1)
Quarter: 2021Q2

REPORT INFORMATION
  Report Type: Other
  Country: FR (occurrence: FR)
  Receive Date: 20210623
  Receipt Date: 20210623
  Transmission Date: 20210717
  Serious: Yes (Other)
  Sender: FDA-Public Use
  Company Number: FR-ROCHE-2851726

PATIENT
  Age: 22 Year
  Sex: Female

DRUGS (1)
  1. VEMURAFENIB. [Suspect]
     Active Substance: VEMURAFENIB
     Indication: HISTIOCYTIC SARCOMA
     Route: 065

REACTIONS (1)
  - Sarcoidosis [Unknown]
